FAERS Safety Report 6152313-3 (Version None)
Quarter: 2009Q2

REPORT INFORMATION
  Report Type: 
  Country: None (occurrence: None)
  Receive Date: 20090410
  Receipt Date: 20090403
  Transmission Date: 20091009
  Serious: Yes (Other)
  Sender: FDA-Public Use
  Company Number: US-GENENTECH-279877

PATIENT
  Age: 76 Year
  Sex: Male

DRUGS (7)
  1. XOLAIR [Suspect]
     Indication: DRUG USE FOR UNKNOWN INDICATION
     Dosage: UNK
  2. CORTICOSTEROID NOS [Concomitant]
     Indication: DRUG USE FOR UNKNOWN INDICATION
     Dosage: 2 PUFF, UNK
     Route: 048
  3. DILACOR XR (UNITED STATES) [Concomitant]
     Indication: DRUG USE FOR UNKNOWN INDICATION
  4. COZAAR [Concomitant]
     Indication: DRUG USE FOR UNKNOWN INDICATION
  5. ALLOPURINOL [Concomitant]
     Indication: DRUG USE FOR UNKNOWN INDICATION
  6. FLOVENT [Concomitant]
     Indication: DRUG USE FOR UNKNOWN INDICATION
  7. CALCITRIOL [Concomitant]
     Indication: DRUG USE FOR UNKNOWN INDICATION

REACTIONS (3)
  - DYSPNOEA [None]
  - PARAESTHESIA [None]
  - RASH MACULAR [None]
